FAERS Safety Report 6749338-3 (Version None)
Quarter: 2010Q2

REPORT INFORMATION
  Report Type: 
  Country: None (occurrence: None)
  Receive Date: 20100601
  Receipt Date: 20100520
  Transmission Date: 20101027
  Serious: Yes (Hospitalization)
  Sender: FDA-Public Use
  Company Number: BR-ROCHE-701861

PATIENT
  Sex: Male
  Weight: 49 kg

DRUGS (2)
  1. ISOTRETINOIN [Suspect]
     Route: 048
     Dates: start: 20100319, end: 20100503
  2. INFLUENZA H1N1 VACCINE [Suspect]
     Indication: DRUG USE FOR UNKNOWN INDICATION
     Dosage: INFLUENZA A H1N1 VACCINE RECEIVED ON 15 APRIL 2010
     Route: 065

REACTIONS (3)
  - ASTHMA [None]
  - BRONCHOSPASM [None]
  - COUGH [None]
